FAERS Safety Report 9384836 (Version 4)
Quarter: 2014Q2

REPORT INFORMATION
  Report Type: Spontaneous
  Country: US (occurrence: US)
  Receive Date: 20130705
  Receipt Date: 20140424
  Transmission Date: 20141212
  Serious: Yes (Other)
  Sender: FDA-Public Use
  Company Number: US-PFIZER INC-2013197412

PATIENT
  Age: 61 Year
  Sex: Female
  Weight: 79 kg

DRUGS (8)
  1. PREMPRO [Suspect]
     Indication: MENOPAUSAL SYMPTOMS
     Dosage: ESTROGENS CONJUGATED (0.625 MG), MEDROXYPROGESTERONE ACETATE (2.5 MG), 1X/DAY
     Route: 048
     Dates: end: 201304
  2. PREMPRO [Suspect]
     Dosage: ESTROGENS CONJUGATED (0.625 MG), MEDROXYPROGESTERONE ACETATE (2.5 MG), UNK
     Dates: start: 20130701
  3. LEVOTHYROXINE [Concomitant]
     Indication: THYROID DISORDER
     Dosage: UNK
  4. AMBIEN [Concomitant]
     Dosage: UNK
  5. ATIVAN [Concomitant]
     Dosage: UNK
  6. SOMA [Concomitant]
     Dosage: UNK
  7. ASPIRIN [Concomitant]
  8. PROSOM [Concomitant]
     Dosage: UNK

REACTIONS (16)
  - Gastrointestinal disorder [Unknown]
  - Abdominal distension [Unknown]
  - Decreased appetite [Recovering/Resolving]
  - Constipation [Recovering/Resolving]
  - Fatigue [Unknown]
  - Night sweats [Unknown]
  - Weight increased [Unknown]
  - Dry eye [Recovered/Resolved]
  - Migraine [Recovered/Resolved]
  - Asthenia [Recovered/Resolved]
  - Fluid retention [Unknown]
  - Swelling [Unknown]
  - Swelling face [Unknown]
  - Weight decreased [Unknown]
  - Hormone level abnormal [Unknown]
  - Feeling abnormal [Unknown]
